FAERS Safety Report 17580787 (Version 1)
Quarter: 2020Q1

REPORT INFORMATION
  Report Type: Spontaneous
  Country: GB (occurrence: GB)
  Receive Date: 20200325
  Receipt Date: 20200325
  Transmission Date: 20200409
  Serious: Yes (Other)
  Sender: FDA-Public Use
  Company Number: GB-MYLANLABS-2020M1030371

PATIENT
  Age: 74 Year
  Sex: Male
  Weight: 84 kg

DRUGS (1)
  1. SILDENAFIL. [Suspect]
     Active Substance: SILDENAFIL
     Indication: PRODUCT USED FOR UNKNOWN INDICATION
     Dosage: 100 MILLIGRAM, PRN (AS NECESSARY)
     Route: 048
     Dates: start: 20020101

REACTIONS (1)
  - Chromatopsia [Not Recovered/Not Resolved]

NARRATIVE: CASE EVENT DATE: 20020101
